FAERS Safety Report 6054183-0 (Version None)
Quarter: 2009Q1

REPORT INFORMATION
  Report Type: 
  Country: None (occurrence: None)
  Receive Date: 20090127
  Receipt Date: 20090119
  Transmission Date: 20090719
  Serious: Yes (Hospitalization)
  Sender: FDA-Public Use
  Company Number: US-TEVA-184155USA

PATIENT
  Age: 79 Year
  Sex: Male

DRUGS (2)
  1. SERTRALINE HCL [Suspect]
     Indication: POST-TRAUMATIC STRESS DISORDER
     Dosage: 25 MG/DAY TO 50 MG /DAY TO 100 MG/DAY
     Route: 048
  2. SERTRALINE HCL [Suspect]
     Indication: MAJOR DEPRESSION

REACTIONS (1)
  - SLEEP INERTIA [None]
